FAERS Safety Report 19994698 (Version 1)
Quarter: 2021Q4

REPORT INFORMATION
  Report Type: Spontaneous
  Country: US (occurrence: US)
  Receive Date: 20211025
  Receipt Date: 20211025
  Transmission Date: 20220303
  Serious: Yes (unspecified)
  Sender: FDA-Public Use
  Company Number: None

PATIENT
  Age: 46 Year
  Sex: Male
  Weight: 47.5 kg

DRUGS (3)
  1. INFLIXIMAB-DYYB [Suspect]
     Active Substance: INFLIXIMAB-DYYB
     Indication: Crohn^s disease
     Dosage: ?          OTHER FREQUENCY:ONE TIME INFUSION;
     Route: 045
     Dates: start: 20211022, end: 20211022
  2. diphenhydramine 25mg IV [Concomitant]
     Dates: start: 20211022, end: 20211022
  3. hydrocortisone succinate 100 mg IV [Concomitant]
     Dates: start: 20211022, end: 20211022

REACTIONS (3)
  - Dyspnoea [None]
  - Flushing [None]
  - Hypersensitivity [None]

NARRATIVE: CASE EVENT DATE: 20211022
